FAERS Safety Report 7323545-3 (Version None)
Quarter: 2011Q1

REPORT INFORMATION
  Report Type: 
  Country: None (occurrence: None)
  Receive Date: 20110301
  Receipt Date: 20110216
  Transmission Date: 20110831
  Serious: Yes (Other)
  Sender: FDA-Public Use
  Company Number: US-KINGPHARMUSA00001-K201100180

PATIENT
  Age: 60 Year
  Sex: Female

DRUGS (2)
  1. LEVOXYL [Suspect]
     Dosage: 88 MCG, UNK
     Route: 048
  2. WARFARIN [Concomitant]

REACTIONS (7)
  - SUICIDAL IDEATION [None]
  - LOSS OF CONSCIOUSNESS [None]
  - NAUSEA [None]
  - MYALGIA [None]
  - HAEMATEMESIS [None]
  - BLOOD THYROID STIMULATING HORMONE ABNORMAL [None]
  - CRYING [None]
